FAERS Safety Report 11221448 (Version 1)
Quarter: 2015Q2

REPORT INFORMATION
  Report Type: Spontaneous
  Country: US (occurrence: US)
  Receive Date: 20150626
  Receipt Date: 20150626
  Transmission Date: 20150821
  Serious: No
  Sender: FDA-Public Use
  Company Number: US-PFIZER INC-2015208347

PATIENT

DRUGS (1)
  1. VIROPTIC [Suspect]
     Active Substance: TRIFLURIDINE
     Dosage: UNK

REACTIONS (1)
  - Parosmia [Unknown]
